FAERS Safety Report 9813196 (Version 1)
Quarter: 2014Q1

REPORT INFORMATION
  Report Type: Report from Study
  Country: JP (occurrence: JP)
  Receive Date: 20140113
  Receipt Date: 20140113
  Transmission Date: 20141002
  Serious: Yes (Death)
  Sender: FDA-Public Use
  Company Number: JP-SA-2014SA003433

PATIENT
  Sex: 0

DRUGS (3)
  1. CISPLATIN [Suspect]
     Indication: OESOPHAGEAL CARCINOMA
     Dosage: ON DAY 1
     Route: 065
  2. FLUOROURACIL [Suspect]
     Indication: OESOPHAGEAL CARCINOMA
     Dosage: ON DAYS 1-5, EVERY MONTH
     Route: 065
  3. DOCETAXEL [Suspect]
     Indication: OESOPHAGEAL CARCINOMA
     Route: 065

REACTIONS (1)
  - Pneumonitis [Fatal]
